FAERS Safety Report 12617371 (Version 3)
Quarter: 2017Q3

REPORT INFORMATION
  Report Type: Spontaneous
  Country: IT (occurrence: IT)
  Receive Date: 20160803
  Receipt Date: 20170728
  Transmission Date: 20171127
  Serious: Yes (Other)
  Sender: FDA-Public Use
  Company Number: IT-ACCORD-042769

PATIENT
  Age: 62 Year
  Sex: Female
  Weight: 60 kg

DRUGS (11)
  1. FLUOROURACIL ACCORD [Suspect]
     Active Substance: FLUOROURACIL
     Indication: COLON CANCER
     Dosage: REINTRODUCED ON 27-MAY-2016.?RECEIVED I.V DRIP 3816 MG CYCLICAL ON 13-MAY-2016 AND ON 27-MAY-2016
     Route: 040
     Dates: start: 20160513
  2. TENORMIN [Concomitant]
     Active Substance: ATENOLOL
     Indication: HYPERTENSION
     Route: 048
  3. GRANISETRON KABI [Concomitant]
     Active Substance: GRANISETRON
     Indication: PREMEDICATION
     Dosage: 1MG/ML
     Route: 042
     Dates: start: 20160513, end: 20160513
  4. RANITIDINE. [Concomitant]
     Active Substance: RANITIDINE
     Indication: PREMEDICATION
     Dosage: INJECTABLE SOLUTION, 50 MG/5 ML
     Route: 042
     Dates: start: 20160513, end: 20160513
  5. REVOLADE NOVARTIS EUROPHARM LTD [Concomitant]
     Indication: THROMBOCYTOPENIA
     Route: 048
  6. CYMBALTA [Concomitant]
     Active Substance: DULOXETINE HYDROCHLORIDE
     Indication: DEPRESSION
     Route: 048
  7. SOLDESAM [Concomitant]
     Active Substance: DEXAMETHASONE
     Indication: PREMEDICATION
     Dosage: INJECTABLE SOLUTION, 8 MG/2 ML
     Route: 042
     Dates: start: 20160513, end: 20160513
  8. NOVONORM [Concomitant]
     Active Substance: REPAGLINIDE
     Indication: DIABETES MELLITUS
     Route: 048
  9. OXALIPLATIN ACCORD [Suspect]
     Active Substance: OXALIPLATIN
     Indication: COLON CANCER
     Dosage: ALSO RECEIVED SAME DOSE ON 27-MAY-2016.?THERAPY WITH OXALIPLATIN ACCORD WAS REINTRODUCED.
     Route: 042
     Dates: start: 20160513
  10. VECTIBIX [Suspect]
     Active Substance: PANITUMUMAB
     Indication: COLON CANCER
     Dosage: ALSO RECEIVED SAME DOSE ON 27-MAY-2016.?THERAPY WITH VECTIBIX WAS REINTRODUCED
     Route: 042
     Dates: start: 20160513
  11. CALCIUM LEVOFOLINATE [Suspect]
     Active Substance: LEVOLEUCOVORIN CALCIUM
     Indication: COLON CANCER
     Dosage: ALSO RECEIVED SAME DOSE ON 27-MAY-2016.?THERAPY WITH CALCIUM LEVOFOLINATE WAS REINTRODUCED.
     Route: 042
     Dates: start: 20160513

REACTIONS (3)
  - Chest pain [Recovering/Resolving]
  - Rash [Recovering/Resolving]
  - Conjunctivitis [Not Recovered/Not Resolved]

NARRATIVE: CASE EVENT DATE: 20160513
